FAERS Safety Report 25451195 (Version 2)
Quarter: 2025Q4

REPORT INFORMATION
  Report Type: Report from Study
  Country: GB (occurrence: GB)
  Receive Date: 20250618
  Receipt Date: 20251017
  Transmission Date: 20260118
  Serious: Yes (Hospitalization)
  Sender: ABBVIE
  Company Number: GB-ABBVIE-6325030

PATIENT
  Age: 67 Year
  Sex: Female

DRUGS (3)
  1. CARBIDOPA [Suspect]
     Active Substance: CARBIDOPA
     Indication: Parkinson^s disease
     Dosage: 20MGS/5MGS , CD-3.1ML/HOUR
     Route: 050
     Dates: start: 202110
  2. CARBIDOPA [Suspect]
     Active Substance: CARBIDOPA
     Dosage: DUODOPA  INCREASED FROM 3.1ML/HOUR TO 3.3ML/HOUR.
     Route: 050
  3. CLOZAPINE [Concomitant]
     Active Substance: CLOZAPINE
     Indication: Product used for unknown indication

REACTIONS (10)
  - Asthma [Unknown]
  - Hallucination [Recovered/Resolved]
  - Tremor [Unknown]
  - Musculoskeletal stiffness [Unknown]
  - Bradykinesia [Unknown]
  - Mobility decreased [Unknown]
  - Confusional state [Unknown]
  - Gastrointestinal infection [Unknown]
  - Gait disturbance [Unknown]
  - Loss of personal independence in daily activities [Unknown]
